FAERS Safety Report 15406779 (Version 2)
Quarter: 2018Q4

REPORT INFORMATION
  Report Type: Spontaneous
  Country: US (occurrence: US)
  Receive Date: 20180920
  Receipt Date: 20181025
  Transmission Date: 20190204
  Serious: No
  Sender: FDA-Public Use
  Company Number: US-LUNDBECK-DKLU2054457

PATIENT
  Age: 21 Year
  Sex: Female

DRUGS (2)
  1. NORTHERA [Suspect]
     Active Substance: DROXIDOPA
     Indication: PRODUCT USED FOR UNKNOWN INDICATION
     Route: 048
     Dates: start: 20180911, end: 20180916
  2. NORTHERA [Suspect]
     Active Substance: DROXIDOPA
     Route: 048
     Dates: start: 20180916, end: 20180916

REACTIONS (9)
  - Musculoskeletal stiffness [Unknown]
  - Communication disorder [Unknown]
  - Paraesthesia oral [Recovered/Resolved]
  - Blood pressure increased [Unknown]
  - Headache [Unknown]
  - Paraesthesia [Unknown]
  - Temperature intolerance [Unknown]
  - Muscle spasms [Recovered/Resolved]
  - Hypoaesthesia [Unknown]

NARRATIVE: CASE EVENT DATE: 20180915
